FAERS Safety Report 23622872 (Version 1)
Quarter: 2024Q1

REPORT INFORMATION
  Report Type: Spontaneous
  Country: US (occurrence: US)
  Receive Date: 20240312
  Receipt Date: 20240312
  Transmission Date: 20240409
  Serious: No
  Sender: FDA-Public Use
  Company Number: US-PFIZER INC-202400060481

PATIENT
  Age: 15 Year
  Sex: Female

DRUGS (2)
  1. OXBRYTA [Suspect]
     Active Substance: VOXELOTOR
     Dosage: 1500 MG, DAILY (THREE 500 MG TABLETS DAILY)
  2. OXBRYTA [Suspect]
     Active Substance: VOXELOTOR
     Dosage: 1000 MG, DAILY (TWO 500 MG TABLETS DAILY)

REACTIONS (2)
  - Diarrhoea [Unknown]
  - Headache [Unknown]
